FAERS Safety Report 17469970 (Version 2)
Quarter: 2020Q1

REPORT INFORMATION
  Report Type: Spontaneous
  Country: FR (occurrence: FR)
  Receive Date: 20200227
  Receipt Date: 20200326
  Transmission Date: 20200409
  Serious: Yes (Other)
  Sender: FDA-Public Use
  Company Number: FR-009507513-2002FRA007016

PATIENT
  Age: 44 Year
  Sex: Female
  Weight: 75 kg

DRUGS (2)
  1. TECHNETIUM TC 99M MEBROFENIN [Interacting]
     Active Substance: TECHNETIUM TC-99M MEBROFENIN
     Indication: RADIOISOTOPE SCAN
     Dosage: 180 MEGABECQUEREL, QD
     Route: 042
     Dates: start: 20190522, end: 20190522
  2. ZEPATIER [Suspect]
     Active Substance: ELBASVIR\GRAZOPREVIR
     Indication: HEPATITIS C VIRUS TEST POSITIVE
     Dosage: UNK
     Route: 048

REACTIONS (2)
  - Therapeutic product ineffective [Recovered/Resolved]
  - Therapy cessation [Recovered/Resolved]

NARRATIVE: CASE EVENT DATE: 20190522
